FAERS Safety Report 12130428 (Version 1)
Quarter: 2016Q1

REPORT INFORMATION
  Report Type: Spontaneous
  Country: US (occurrence: US)
  Receive Date: 20160301
  Receipt Date: 20160301
  Transmission Date: 20160526
  Serious: No
  Sender: FDA-Public Use
  Company Number: US-ACORDA-ACO_25217_2010

PATIENT
  Age: 57 Year
  Sex: Male

DRUGS (6)
  1. AMPYRA [Suspect]
     Active Substance: DALFAMPRIDINE
     Indication: MULTIPLE SCLEROSIS
     Dosage: 10 MG, BID
     Dates: start: 20100825, end: 20160110
  2. GABAPENTIN. [Concomitant]
     Active Substance: GABAPENTIN
     Dosage: DF
  3. VALIUM [Concomitant]
     Active Substance: DIAZEPAM
     Dosage: DF
  4. REBIF [Concomitant]
     Active Substance: INTERFERON BETA-1A
     Dosage: DF
  5. AMPYRA [Suspect]
     Active Substance: DALFAMPRIDINE
     Indication: GAIT DISTURBANCE
  6. BACLOFEN. [Concomitant]
     Active Substance: BACLOFEN
     Dosage: DF

REACTIONS (6)
  - Fatigue [Recovered/Resolved]
  - Muscular weakness [Unknown]
  - Product quality issue [None]
  - Drug ineffective [Not Recovered/Not Resolved]
  - Therapy cessation [Unknown]
  - Arthralgia [Not Recovered/Not Resolved]

NARRATIVE: CASE EVENT DATE: 201008
